FAERS Safety Report 9744491 (Version 1)
Quarter: 2013Q4

REPORT INFORMATION
  Report Type: Spontaneous
  Country: US (occurrence: US)
  Receive Date: 20131210
  Receipt Date: 20131210
  Transmission Date: 20140711
  Serious: Yes (Other)
  Sender: FDA-Public Use
  Company Number: US-ABBVIE-13P-163-1175511-00

PATIENT
  Sex: Female

DRUGS (1)
  1. LUPRON [Suspect]
     Indication: PRODUCT USED FOR UNKNOWN INDICATION
     Dates: start: 2006

REACTIONS (8)
  - Hysterectomy [Unknown]
  - Weight increased [Unknown]
  - Headache [Unknown]
  - Hyperhidrosis [Unknown]
  - Chills [Unknown]
  - Mood swings [Unknown]
  - Back pain [Unknown]
  - Pain [Unknown]
